FAERS Safety Report 9743002 (Version 1)
Quarter: 2013Q4

REPORT INFORMATION
  Report Type: Spontaneous
  Country: US (occurrence: US)
  Receive Date: 20131210
  Receipt Date: 20131210
  Transmission Date: 20140711
  Serious: Yes (Death)
  Sender: FDA-Public Use
  Company Number: US-ACTELION-A-US2013-92053

PATIENT
  Age: 73 Year
  Sex: Female

DRUGS (2)
  1. VELETRI [Suspect]
     Indication: COR PULMONALE CHRONIC
     Dosage: 19.5 NG/KG, PER MIN
     Route: 041
     Dates: start: 20101210, end: 20131126
  2. COUMADIN [Concomitant]

REACTIONS (1)
  - Death [Fatal]
